FAERS Safety Report 9563138 (Version 2)
Quarter: 2013Q3

REPORT INFORMATION
  Report Type: Spontaneous
  Country: US (occurrence: US)
  Receive Date: 20130927
  Receipt Date: 20130927
  Transmission Date: 20140515
  Serious: No
  Sender: FDA-Public Use
  Company Number: US-BRISTOL-MYERS SQUIBB COMPANY-17348327

PATIENT
  Age: 74 Year
  Sex: Female

DRUGS (2)
  1. ONGLYZA TABS 5 MG [Suspect]
     Indication: DIABETES MELLITUS
  2. METFORMIN HCL [Suspect]
     Indication: DIABETES MELLITUS

REACTIONS (2)
  - Blood glucose increased [Unknown]
  - Diarrhoea [Unknown]
